FAERS Safety Report 4651891-0 (Version None)
Quarter: 2005Q2

REPORT INFORMATION
  Report Type: 
  Country: None (occurrence: None)
  Receive Date: 20050504
  Receipt Date: 20050420
  Transmission Date: 20051028
  Serious: Yes (Hospitalization, Other)
  Sender: FDA-Public Use
  Company Number: PHEH2005US04560

PATIENT
  Age: 79 Year
  Sex: Female

DRUGS (2)
  1. ZOMETA [Suspect]
     Indication: MULTIPLE MYELOMA
     Dosage: 4 MG EVERY 3 WEEKS
  2. ANTICOAGULANTS [Concomitant]

REACTIONS (7)
  - ASEPTIC NECROSIS BONE [None]
  - BONE INFECTION [None]
  - BONE LESION [None]
  - DENTURE WEARER [None]
  - MEDICAL DEVICE DISCOMFORT [None]
  - PNEUMONIA [None]
  - PYREXIA [None]
